FAERS Safety Report 4451523-0 (Version None)
Quarter: 2004Q3

REPORT INFORMATION
  Report Type: 
  Country: None (occurrence: None)
  Receive Date: 20040915
  Receipt Date: 20040902
  Transmission Date: 20050211
  Serious: Yes (Death, Other)
  Sender: FDA-Public Use
  Company Number: 2004231194US

PATIENT
  Age: 70 Year
  Sex: Female
  Weight: 137.4 kg

DRUGS (6)
  1. CELEBREX [Suspect]
     Dosage: 100 MG, BID, 200 MG, BID
     Dates: start: 19991227
  2. CELEBREX [Suspect]
     Dosage: 100 MG, BID, 200 MG, BID
     Dates: start: 20000128
  3. LIPITOR [Concomitant]
  4. ALLOPURINOL [Concomitant]
  5. CLONIDINE HCL [Concomitant]
  6. ZESTRIL [Concomitant]

REACTIONS (32)
  - ABSCESS LIMB [None]
  - BACTERIA BLOOD IDENTIFIED [None]
  - BACTERIAL CULTURE POSITIVE [None]
  - CARDIAC ARREST [None]
  - CARDIAC FAILURE CONGESTIVE [None]
  - CARDIO-RESPIRATORY ARREST [None]
  - DIABETES MELLITUS NON-INSULIN-DEPENDENT [None]
  - DIALYSIS [None]
  - ESCHERICHIA INFECTION [None]
  - FALL [None]
  - GASTROINTESTINAL ULCER [None]
  - GOUT [None]
  - HAEMATEMESIS [None]
  - HYPERLIPIDAEMIA [None]
  - HYPERTENSION [None]
  - KIDNEY SMALL [None]
  - KLEBSIELLA INFECTION [None]
  - LABORATORY TEST ABNORMAL [None]
  - MELAENA [None]
  - OBESITY [None]
  - OEDEMA PERIPHERAL [None]
  - OSTEOARTHRITIS [None]
  - PROTEUS INFECTION [None]
  - PULMONARY OEDEMA [None]
  - RENAL CYST [None]
  - RENAL FAILURE ACUTE [None]
  - RENAL FAILURE CHRONIC [None]
  - SERRATIA INFECTION [None]
  - STAPHYLOCOCCAL INFECTION [None]
  - WOUND DEHISCENCE [None]
  - WOUND DRAINAGE [None]
  - WOUND INFECTION [None]
